FAERS Safety Report 17431340 (Version 1)
Quarter: 2020Q1

REPORT INFORMATION
  Report Type: Spontaneous
  Country: US (occurrence: US)
  Receive Date: 20200218
  Receipt Date: 20200218
  Transmission Date: 20200409
  Serious: No
  Sender: FDA-Public Use
  Company Number: US-PFIZER INC-2019543859

PATIENT
  Age: 55 Year
  Sex: Female

DRUGS (7)
  1. AMLODIPINE AND VALSARTAN [Concomitant]
     Active Substance: AMLODIPINE\VALSARTAN
     Dosage: 1 DF, DAILY (5/160 MG)
  2. SIMVASTATIN. [Concomitant]
     Active Substance: SIMVASTATIN
     Dosage: 10 MG, UNK
  3. DOCETAXEL. [Suspect]
     Active Substance: DOCETAXEL
     Indication: BREAST CANCER FEMALE
     Dosage: 75 MG/M2, EVERY 2 WEEKS
     Dates: start: 201607, end: 201609
  4. ANASTROZOLE. [Concomitant]
     Active Substance: ANASTROZOLE
     Dosage: 1 MG, UNK
  5. METFORMIN HCL [Concomitant]
     Active Substance: METFORMIN HYDROCHLORIDE
     Dosage: 1000 MG, 2X/DAY
  6. TAMOXIFEN [Concomitant]
     Active Substance: TAMOXIFEN
     Dosage: 10 MG, UNK
     Dates: start: 201608, end: 201909
  7. NEOSAR [Concomitant]
     Active Substance: CYCLOPHOSPHAMIDE
     Indication: CHEMOTHERAPY
     Dosage: 600 MG/M2, UNK

REACTIONS (5)
  - Hair colour changes [Unknown]
  - Hair disorder [Unknown]
  - Alopecia [Not Recovered/Not Resolved]
  - Madarosis [Not Recovered/Not Resolved]
  - Hair texture abnormal [Unknown]
